FAERS Safety Report 14227540 (Version 5)
Quarter: 2018Q2

REPORT INFORMATION
  Report Type: Spontaneous
  Country: MY (occurrence: MY)
  Receive Date: 20171127
  Receipt Date: 20180522
  Transmission Date: 20180711
  Serious: Yes (Hospitalization, Other)
  Sender: FDA-Public Use
  Company Number: MY-PFIZER INC-2017505695

PATIENT
  Age: 49 Year
  Sex: Female
  Weight: 79 kg

DRUGS (6)
  1. ANZATAX (PACLITAXEL) [Suspect]
     Active Substance: PACLITAXEL
     Indication: OVARIAN CANCER
     Dosage: 315 MG, UNK
     Route: 042
  2. RANITIDINE. [Concomitant]
     Active Substance: RANITIDINE
     Dosage: 50 MG, UNK
     Route: 042
  3. CHLORPHENIRAMINE /00072501/ [Concomitant]
     Active Substance: CHLORPHENIRAMINE
     Dosage: 10 MG, UNK
     Route: 042
  4. CARBOPLATIN. [Concomitant]
     Active Substance: CARBOPLATIN
     Dosage: 580 MG, UNK
     Route: 042
     Dates: start: 20170803, end: 20170804
  5. ANZATAX (PACLITAXEL) [Suspect]
     Active Substance: PACLITAXEL
     Dosage: 300 MG, 1X/DAY
     Route: 042
     Dates: start: 20170803, end: 20170804
  6. DEXAMETHASONE SODIUM PHOSPHATE. [Concomitant]
     Active Substance: DEXAMETHASONE SODIUM PHOSPHATE
     Dosage: 20 MG, UNK
     Route: 042

REACTIONS (4)
  - Dyspnoea [Recovered/Resolved]
  - Choking [Recovered/Resolved]
  - Hypersensitivity [Recovered/Resolved]
  - Back pain [Recovered/Resolved]

NARRATIVE: CASE EVENT DATE: 20170803
